FAERS Safety Report 6278773-5 (Version None)
Quarter: 2009Q3

REPORT INFORMATION
  Report Type: 
  Country: None (occurrence: None)
  Receive Date: 20090721
  Receipt Date: 20090709
  Transmission Date: 20100115
  Serious: Yes (Hospitalization)
  Sender: FDA-Public Use
  Company Number: 235062K09USA

PATIENT
  Age: 50 Year
  Sex: Female
  Weight: 77 kg

DRUGS (11)
  1. REBIF [Suspect]
     Indication: MULTIPLE SCLEROSIS
     Dosage: 44 MCG, 3 IN 1 WEEKS, SUBCUTANEOUS
     Route: 058
     Dates: start: 20090212, end: 20090401
  2. HUMALOG INSULIN (INSULIN LISPRO) [Concomitant]
  3. LANTUS [Concomitant]
  4. NEURONTIN [Concomitant]
  5. FLORINEF [Concomitant]
  6. PROAMATINE [Concomitant]
  7. BACLOFEN [Concomitant]
  8. REGLAN (METOCLOPRAMIDE /00041901/) [Concomitant]
  9. MS CONTIN [Concomitant]
  10. PERCOCET [Concomitant]
  11. OPANA (ALL OTHER THERAPEUTIC PRODUCTS) [Concomitant]

REACTIONS (13)
  - ABDOMINAL PAIN [None]
  - ASTHENIA [None]
  - BACTERIAL INFECTION [None]
  - BLOOD DISORDER [None]
  - DEPRESSED LEVEL OF CONSCIOUSNESS [None]
  - DIARRHOEA [None]
  - LOSS OF CONSCIOUSNESS [None]
  - NAUSEA [None]
  - POST PROCEDURAL INFECTION [None]
  - PRODUCT CONTAMINATION [None]
  - SLEEP DISORDER [None]
  - VOMITING [None]
  - WEIGHT DECREASED [None]
